FAERS Safety Report 15479117 (Version 1)
Quarter: 2018Q4

REPORT INFORMATION
  Report Type: Spontaneous
  Country: US (occurrence: US)
  Receive Date: 20181009
  Receipt Date: 20181009
  Transmission Date: 20190205
  Serious: Yes (Other)
  Sender: FDA-Public Use
  Company Number: US-HIKMA PHARMACEUTICALS USA INC.-US-H14001-18-07720

PATIENT
  Age: 80 Year
  Sex: Male

DRUGS (1)
  1. CYANOCOBALAMIN. [Suspect]
     Active Substance: CYANOCOBALAMIN
     Indication: PRODUCT USED FOR UNKNOWN INDICATION
     Dosage: SELF-INJECTION
     Route: 065

REACTIONS (5)
  - Propionibacterium infection [Recovered/Resolved]
  - Abscess [Recovered/Resolved]
  - Cardiac failure congestive [Recovered/Resolved]
  - Mitral valve incompetence [Recovered/Resolved]
  - Endocarditis [Recovered/Resolved]
